FAERS Safety Report 10480452 (Version 2)
Quarter: 2014Q4

REPORT INFORMATION
  Report Type: Spontaneous
  Country: IT (occurrence: IT)
  Receive Date: 20140929
  Receipt Date: 20141103
  Transmission Date: 20150528
  Serious: Yes (Hospitalization, Other)
  Sender: FDA-Public Use
  Company Number: IT-JNJFOC-20140924325

PATIENT
  Age: 48 Year
  Sex: Male

DRUGS (3)
  1. PATROL [Suspect]
     Active Substance: ACETAMINOPHEN\TRAMADOL HYDROCHLORIDE
     Indication: CERVICOBRACHIAL SYNDROME
     Route: 048
     Dates: start: 20140908, end: 20140908
  2. TACHIDOL [Suspect]
     Active Substance: ACETAMINOPHEN\CODEINE PHOSPHATE
     Indication: CERVICOBRACHIAL SYNDROME
     Route: 048
     Dates: start: 20140831, end: 20140909
  3. IBIFEN [Concomitant]
     Indication: CERVICOBRACHIAL SYNDROME
     Route: 042

REACTIONS (4)
  - Syncope [Recovering/Resolving]
  - Somnolence [Recovering/Resolving]
  - Clonus [Recovered/Resolved]
  - Overdose [Unknown]

NARRATIVE: CASE EVENT DATE: 20140908
